FAERS Safety Report 8491880-1 (Version None)
Quarter: 2012Q3

REPORT INFORMATION
  Report Type: 
  Country: None (occurrence: None)
  Receive Date: 20120706
  Receipt Date: 20110929
  Transmission Date: 20120928
  Serious: No
  Sender: FDA-Public Use
  Company Number: US-GLAXOSMITHKLINE-A0946454A

PATIENT
  Age: 3 Year
  Sex: Male

DRUGS (2)
  1. FLOVENT [Suspect]
     Indication: ASTHMA
     Dosage: 1PUFF SIX TIMES PER DAY
     Route: 055
     Dates: start: 20110501
  2. ALBUTEROL [Concomitant]

REACTIONS (3)
  - HYPERHIDROSIS [None]
  - OVERDOSE [None]
  - MEDICATION ERROR [None]
